FAERS Safety Report 10523996 (Version 1)
Quarter: 2014Q4

REPORT INFORMATION
  Report Type: Spontaneous
  Country: US (occurrence: None)
  Receive Date: 20141015
  Receipt Date: 20141015
  Transmission Date: 20150528
  Serious: No
  Sender: FDA-Public Use
  Company Number: None

PATIENT
  Age: 80 Year
  Sex: Female
  Weight: 74.6 kg

DRUGS (3)
  1. BEVACIZUMAB (RHUMAB VEGF) [Suspect]
     Active Substance: BEVACIZUMAB
  2. CARBOPLATIN. [Suspect]
     Active Substance: CARBOPLATIN
  3. TAXOL [Suspect]
     Active Substance: PACLITAXEL

REACTIONS (7)
  - Cardio-respiratory arrest [None]
  - Ventricular tachycardia [None]
  - Pulseless electrical activity [None]
  - Blood glucose increased [None]
  - Ventricular fibrillation [None]
  - Fall [None]
  - Unresponsive to stimuli [None]

NARRATIVE: CASE EVENT DATE: 20140908
